FAERS Safety Report 23500400 (Version 6)
Quarter: 2024Q3

REPORT INFORMATION
  Report Type: Report from Study
  Country: CA (occurrence: CA)
  Receive Date: 20240208
  Receipt Date: 20240725
  Transmission Date: 20241016
  Serious: Yes (Other)
  Sender: UCB
  Company Number: CA-UCBSA-2023012101

PATIENT
  Sex: Male
  Weight: 91.36 kg

DRUGS (4)
  1. BIMEKIZUMAB [Suspect]
     Active Substance: BIMEKIZUMAB
     Indication: Psoriasis
     Dosage: 320 MILLIGRAM, EV 4 WEEKS X 4
     Route: 058
     Dates: start: 20230210, end: 2023
  2. BIMEKIZUMAB [Suspect]
     Active Substance: BIMEKIZUMAB
     Dosage: 320 MILLIGRAM, EV 8 WEEKS
     Route: 058
     Dates: start: 2023, end: 2023
  3. BIMEKIZUMAB [Suspect]
     Active Substance: BIMEKIZUMAB
     Dosage: 320 MILLIGRAM, EV 8 WEEKS
     Route: 058
     Dates: start: 202309
  4. BIMEKIZUMAB [Suspect]
     Active Substance: BIMEKIZUMAB
     Dosage: 320 MILLIGRAM, EV 4 WEEKS
     Route: 058
     Dates: start: 20240614

REACTIONS (22)
  - Joint injury [Recovering/Resolving]
  - Arthritis [Not Recovered/Not Resolved]
  - Eczema [Recovering/Resolving]
  - Onychoclasis [Recovering/Resolving]
  - Psoriasis [Not Recovered/Not Resolved]
  - Impaired healing [Recovering/Resolving]
  - Wound secretion [Not Recovered/Not Resolved]
  - Impaired quality of life [Unknown]
  - Rash pruritic [Unknown]
  - Drug hypersensitivity [Unknown]
  - Pruritus [Unknown]
  - Blister [Unknown]
  - Drug ineffective [Unknown]
  - Headache [Unknown]
  - Skin fissures [Unknown]
  - Sleep disorder due to general medical condition, insomnia type [Unknown]
  - Off label use [Unknown]
  - Skin texture abnormal [Unknown]
  - Skin discolouration [Unknown]
  - Nail discolouration [Recovering/Resolving]
  - Weight increased [Unknown]
  - Therapeutic product effect incomplete [Unknown]

NARRATIVE: CASE EVENT DATE: 20230101
